FAERS Safety Report 6296541-5 (Version None)
Quarter: 2009Q3

REPORT INFORMATION
  Report Type: 
  Country: None (occurrence: None)
  Receive Date: 20090804
  Receipt Date: 20090720
  Transmission Date: 20100115
  Serious: Yes (Congenital Anomaly)
  Sender: FDA-Public Use
  Company Number: GB-GENENTECH-284804

PATIENT
  Sex: Female

DRUGS (5)
  1. HERCEPTIN [Suspect]
     Indication: BREAST CANCER
     Dosage: 588 MG, SINGLE
     Route: 042
     Dates: start: 20060207, end: 20060725
  2. HERCEPTIN [Suspect]
     Dosage: 441 MG, Q3W
  3. TAMOXIFEN [Suspect]
     Indication: BREAST CANCER
     Dosage: 20 MG, UNK
     Route: 064
     Dates: start: 20060101
  4. ZOLADEX [Suspect]
     Indication: BREAST CANCER
     Dosage: 3.6 G, UNK
     Route: 064
  5. CHEMOTHERAPY NOS [Concomitant]
     Indication: DRUG USE FOR UNKNOWN INDICATION
     Dosage: UNK
     Dates: start: 20050515, end: 20050915

REACTIONS (1)
  - PULMONARY HYPOPLASIA [None]
